FAERS Safety Report 9821550 (Version 1)
Quarter: 2014Q1

REPORT INFORMATION
  Report Type: Spontaneous
  Country: US (occurrence: US)
  Receive Date: 20140116
  Receipt Date: 20140116
  Transmission Date: 20141002
  Serious: No
  Sender: FDA-Public Use
  Company Number: US-PFIZER INC-2014014256

PATIENT
  Age: 70 Year
  Sex: Female

DRUGS (1)
  1. NICOTROL INHALER [Suspect]
     Indication: SMOKING CESSATION THERAPY
     Dosage: UNK, 3X/DAY

REACTIONS (1)
  - Pruritus generalised [Not Recovered/Not Resolved]
